FAERS Safety Report 7479265-8 (Version None)
Quarter: 2011Q2

REPORT INFORMATION
  Report Type: 
  Country: None (occurrence: None)
  Receive Date: 20110513
  Receipt Date: 20110509
  Transmission Date: 20111010
  Serious: Yes (Death)
  Sender: FDA-Public Use
  Company Number: US-ACTELION-A-NJ2011-48400

PATIENT

DRUGS (3)
  1. TRACLEER [Suspect]
     Indication: PULMONARY ARTERIAL HYPERTENSION
     Dosage: UNK
     Route: 048
     Dates: start: 20080225, end: 20110504
  2. EPOPROSTENOL SODIUM [Suspect]
     Indication: PULMONARY ARTERIAL HYPERTENSION
     Dosage: 40 NG/KG, PER MIN
     Route: 041
     Dates: start: 20110101, end: 20110504
  3. EPOPROSTENOL SODIUM [Suspect]
     Dosage: 36 NG/KG, PER MIN
     Route: 041
     Dates: start: 20110413, end: 20110101

REACTIONS (2)
  - RESPIRATORY FAILURE [None]
  - CARDIAC FAILURE CONGESTIVE [None]
